FAERS Safety Report 5815030-2 (Version None)
Quarter: 2008Q3

REPORT INFORMATION
  Report Type: 
  Country: None (occurrence: None)
  Receive Date: 20080718
  Receipt Date: 20080709
  Transmission Date: 20090109
  Serious: Yes (Other)
  Sender: FDA-Public Use
  Company Number: B0528648A

PATIENT
  Age: 84 Year
  Sex: Female

DRUGS (4)
  1. ARIXTRA [Suspect]
     Route: 058
     Dates: start: 20080226, end: 20080527
  2. IMODIUM [Concomitant]
     Route: 065
  3. ACETAMINOPHEN [Concomitant]
     Route: 065
  4. PRIMPERAN TAB [Concomitant]
     Route: 065

REACTIONS (9)
  - DIARRHOEA [None]
  - GENERAL PHYSICAL HEALTH DETERIORATION [None]
  - HAEMOGLOBIN DECREASED [None]
  - HEPATIC NEOPLASM MALIGNANT [None]
  - INTENTIONAL DRUG MISUSE [None]
  - INTRA-ABDOMINAL HAEMATOMA [None]
  - NAUSEA [None]
  - PERITONEAL HAEMORRHAGE [None]
  - VOMITING [None]
